FAERS Safety Report 8260645-8 (Version None)
Quarter: 2012Q2

REPORT INFORMATION
  Report Type: 
  Country: None (occurrence: None)
  Receive Date: 20120405
  Receipt Date: 20120330
  Transmission Date: 20120825
  Serious: Yes (Other)
  Sender: FDA-Public Use
  Company Number: DE-AMGEN-DEUSP2012020595

PATIENT
  Sex: Female

DRUGS (3)
  1. AVASTIN [Concomitant]
     Indication: BREAST CANCER
  2. PACLITAXEL [Concomitant]
     Indication: BREAST CANCER
  3. XGEVA [Suspect]
     Indication: METASTASES TO BONE
     Dosage: UNK
     Dates: start: 20111001

REACTIONS (1)
  - OSTEONECROSIS OF JAW [None]
